FAERS Safety Report 15764371 (Version 1)
Quarter: 2018Q4

REPORT INFORMATION
  Report Type: Spontaneous
  Country: US (occurrence: US)
  Receive Date: 20181227
  Receipt Date: 20181227
  Transmission Date: 20190205
  Serious: Yes (Death)
  Sender: FDA-Public Use
  Company Number: US-ROCHE-2234910

PATIENT
  Age: 52 Year
  Sex: Female

DRUGS (1)
  1. XELODA [Suspect]
     Active Substance: CAPECITABINE
     Indication: NEOPLASM MALIGNANT
     Dosage: THERAPY STATUS AT DEATH: UNKNOWN
     Route: 048
     Dates: start: 20181123

REACTIONS (1)
  - Death [Fatal]

NARRATIVE: CASE EVENT DATE: 20181216
